FAERS Safety Report 8239362-6 (Version None)
Quarter: 2012Q1

REPORT INFORMATION
  Report Type: 
  Country: None (occurrence: None)
  Receive Date: 20120328
  Receipt Date: 20120319
  Transmission Date: 20120608
  Serious: Yes (Hospitalization, Other)
  Sender: FDA-Public Use
  Company Number: US-AMGEN-USASP2012017636

PATIENT
  Age: 54 Year
  Sex: Female

DRUGS (1)
  1. ENBREL [Suspect]
     Indication: OSTEOARTHRITIS
     Dosage: 50 MG, QMO
     Dates: start: 20050101, end: 20120201

REACTIONS (8)
  - PHOTOPSIA [None]
  - HYPOAESTHESIA [None]
  - HYPERTENSION [None]
  - NAUSEA [None]
  - DIZZINESS [None]
  - NERVOUS SYSTEM DISORDER [None]
  - FEELING ABNORMAL [None]
  - PARAESTHESIA [None]
